FAERS Safety Report 4936816-2 (Version None)
Quarter: 2006Q1

REPORT INFORMATION
  Report Type: 
  Country: None (occurrence: None)
  Receive Date: 20060307
  Receipt Date: 20050824
  Transmission Date: 20060701
  Serious: Yes (Hospitalization)
  Sender: FDA-Public Use
  Company Number: US-MERCK-0508USA04124

PATIENT
  Age: 56 Year
  Sex: Male

DRUGS (1)
  1. VIOXX [Suspect]
     Route: 048
     Dates: start: 20000407, end: 20010101

REACTIONS (15)
  - ACUTE MYOCARDIAL INFARCTION [None]
  - ARTERIOSCLEROSIS [None]
  - ARTHRITIS [None]
  - ARTHROFIBROSIS [None]
  - BILIARY DYSKINESIA [None]
  - CHEST PAIN [None]
  - CHOLECYSTITIS [None]
  - CHOLELITHIASIS [None]
  - CORONARY ARTERY DISEASE [None]
  - HYPERLIPIDAEMIA [None]
  - HYPERTENSION [None]
  - LIMB DISCOMFORT [None]
  - LIVER FUNCTION TEST ABNORMAL [None]
  - ROAD TRAFFIC ACCIDENT [None]
  - SPINAL CORD INJURY [None]
